FAERS Safety Report 7822043-8 (Version None)
Quarter: 2011Q4

REPORT INFORMATION
  Report Type: 
  Country: None (occurrence: None)
  Receive Date: 20111018
  Receipt Date: 20111012
  Transmission Date: 20120403
  Serious: Yes (Other)
  Sender: FDA-Public Use
  Company Number: PHEH2008US04392

PATIENT
  Sex: Male

DRUGS (36)
  1. AMOXICILLIN [Concomitant]
  2. OMNICEF [Concomitant]
     Dosage: 300 MG, UNK
  3. LANTUS [Concomitant]
     Dosage: 30 U, QHS
  4. OXYCONTIN [Concomitant]
     Dosage: 80 MG, BID
  5. VITAMIN E [Concomitant]
     Dosage: 400 IU, QD
  6. FUROSEMIDE [Concomitant]
     Dosage: 20 MG, UNK
  7. NEURONTIN [Concomitant]
     Dosage: 600 MG, TID
     Route: 048
  8. DIPHENOXYLATE [Concomitant]
     Dosage: 5 MG, Q4H PRN
  9. ZYMAR [Concomitant]
  10. VIOXX [Concomitant]
     Dosage: 25 MG, QD
  11. VIAGRA [Concomitant]
     Dosage: 50 MG, UNK
  12. CLINDAMYCIN [Concomitant]
     Dosage: 900 MG, UNK
  13. KEFLEX [Concomitant]
  14. LYRICA [Concomitant]
  15. FLAGYL [Concomitant]
     Dosage: 500 MG, UNK
  16. PREDNISONE [Concomitant]
  17. DEXAMETHASONE [Concomitant]
     Dosage: 10 MG, QD ON 4DAYS THEN OFF 4 DAYS
  18. PENICILLIN VK [Concomitant]
  19. AUGMENTIN '125' [Concomitant]
     Dosage: 875 MG, BID
     Route: 048
  20. ASPIRIN [Concomitant]
  21. CEPHALEXIN [Concomitant]
     Dosage: 500 MG, UNK
  22. AREDIA [Suspect]
     Dates: start: 20011201, end: 20040501
  23. AMOXICILINA CLAV ^GEMINIS^ [Concomitant]
     Dosage: 125 MG, UNK
  24. ASCORBIC ACID [Concomitant]
     Dosage: 500 MG, BID
  25. INSULIN [Concomitant]
  26. METRONIDAZOLE [Concomitant]
     Dosage: 500 MG TABLETS
  27. GABAPENTIN [Concomitant]
     Dosage: 300 MG, UNK
  28. LORTAB [Concomitant]
     Dosage: 5 MG, UNK
  29. PERIDEX [Concomitant]
  30. PROCHLORPERAZINE [Concomitant]
     Dosage: 10 MG, UNK
  31. ACTOS [Concomitant]
     Dosage: 45 MG, QAM
     Route: 048
  32. RADIATION THERAPY [Concomitant]
  33. DECADRON [Concomitant]
  34. HUMULIN R [Concomitant]
  35. PEROXIDE [Concomitant]
     Dosage: 20 ML, BID SWISH AND SPIT
     Route: 048
  36. SENNA [Concomitant]

REACTIONS (42)
  - PERIRECTAL ABSCESS [None]
  - IMPAIRED HEALING [None]
  - BONE LOSS [None]
  - COMPRESSION FRACTURE [None]
  - PATHOLOGICAL FRACTURE [None]
  - DECREASED APPETITE [None]
  - SWELLING FACE [None]
  - BACK PAIN [None]
  - ANXIETY [None]
  - BONE EROSION [None]
  - OSTEOMYELITIS [None]
  - SINUS DISORDER [None]
  - BONE FRAGMENTATION [None]
  - HYPERGLYCAEMIA [None]
  - OSTEOARTHRITIS [None]
  - JAW FRACTURE [None]
  - PURULENCE [None]
  - OSTEITIS [None]
  - MALAISE [None]
  - THROMBOCYTOPENIA [None]
  - ANAEMIA [None]
  - ERECTILE DYSFUNCTION [None]
  - SPONDYLOLISTHESIS [None]
  - FACET JOINT SYNDROME [None]
  - INJURY [None]
  - PAIN IN JAW [None]
  - HYPERTENSION [None]
  - HAEMORRHOIDS [None]
  - LUNG DISORDER [None]
  - INTERVERTEBRAL DISC SPACE NARROWING [None]
  - EXOSTOSIS [None]
  - DENTAL CARIES [None]
  - INFECTION [None]
  - BONE DISORDER [None]
  - FATIGUE [None]
  - DECREASED IMMUNE RESPONSIVENESS [None]
  - OSTEONECROSIS OF JAW [None]
  - SPEECH DISORDER [None]
  - TOOTHACHE [None]
  - POLLAKIURIA [None]
  - LEUKOCYTOSIS [None]
  - PYREXIA [None]
